FAERS Safety Report 5497994-2 (Version None)
Quarter: 2007Q4

REPORT INFORMATION
  Report Type: 
  Country: None (occurrence: None)
  Receive Date: 20071018
  Receipt Date: 20060911
  Transmission Date: 20080405
  Serious: Yes (Other)
  Sender: FDA-Public Use
  Company Number: 2006109788

PATIENT
  Sex: Male
  Weight: 104.3273 kg

DRUGS (4)
  1. NEURONTIN [Suspect]
     Indication: HEAD INJURY
     Dosage: 900 MG (300 MG, 3 IN 1 D) , ORAL
     Route: 048
  2. ZOLOFT [Suspect]
     Indication: ANGER
  3. ZOLOFT [Suspect]
     Indication: DEPRESSION
  4. ZOLOFT [Suspect]
     Indication: ILL-DEFINED DISORDER

REACTIONS (3)
  - DRUG INEFFECTIVE [None]
  - NERVOUSNESS [None]
  - SUICIDAL IDEATION [None]
